FAERS Safety Report 9136481 (Version 1)
Quarter: 2013Q1

REPORT INFORMATION
  Report Type: Spontaneous
  Country: US (occurrence: US)
  Receive Date: 20130304
  Receipt Date: 20130304
  Transmission Date: 20140127
  Serious: No
  Sender: FDA-Public Use
  Company Number: US-ABBOTT-12P-163-0928517-00

PATIENT
  Sex: Male

DRUGS (7)
  1. ANDROGEL 1% [Suspect]
     Indication: BLOOD TESTOSTERONE DECREASED
  2. ANDROGEL 1% [Suspect]
  3. TRAMADOL [Concomitant]
     Indication: BACK PAIN
  4. TRAMADOL [Concomitant]
     Indication: ARTHRALGIA
  5. NEXIUM [Concomitant]
     Indication: ULCER
  6. VITAMIN B [Concomitant]
     Indication: PRODUCT USED FOR UNKNOWN INDICATION
  7. CALCIUM [Concomitant]
     Indication: PRODUCT USED FOR UNKNOWN INDICATION

REACTIONS (2)
  - Erectile dysfunction [Recovered/Resolved]
  - Erectile dysfunction [Not Recovered/Not Resolved]
